FAERS Safety Report 9435357 (Version 4)
Quarter: 2014Q1

REPORT INFORMATION
  Report Type: Report from Study
  Country: JP (occurrence: JP)
  Receive Date: 20130801
  Receipt Date: 20140205
  Transmission Date: 20141002
  Serious: Yes (Other)
  Sender: FDA-Public Use
  Company Number: JP-BAYER-2013-093227

PATIENT
  Age: 67 Year
  Sex: Male
  Weight: 78 kg

DRUGS (7)
  1. STIVARGA [Suspect]
     Indication: COLON CANCER
     Dosage: DURING 3 WEEKS AND ONE WEEK OFF
     Route: 048
     Dates: start: 20130712, end: 20131018
  2. LOXONIN [Concomitant]
     Dosage: DAILY DOSE 180 MG
     Route: 048
     Dates: start: 20130719
  3. MUCOSTA [Concomitant]
     Dosage: DAILY DOSE 300 MG
     Route: 048
     Dates: start: 20130719
  4. RENIVACE [Concomitant]
     Dosage: DAILY DOSE 5 MG
     Route: 048
  5. ADALAT CR [Concomitant]
     Dosage: DAILY DOSE 20 MG
     Route: 048
  6. HIRUDOID [Concomitant]
     Indication: DRUG TOXICITY PROPHYLAXIS
     Dosage: UNK
     Route: 061
     Dates: start: 20130712, end: 20130726
  7. VASELINE [Concomitant]
     Indication: DRUG TOXICITY PROPHYLAXIS
     Dosage: UNK
     Route: 061
     Dates: start: 20130726, end: 20130802

REACTIONS (5)
  - Deafness [Not Recovered/Not Resolved]
  - Dysphonia [Not Recovered/Not Resolved]
  - Malaise [Not Recovered/Not Resolved]
  - Diarrhoea [Recovered/Resolved]
  - Diarrhoea [Recovering/Resolving]
